FAERS Safety Report 18397618 (Version 1)
Quarter: 2020Q4

REPORT INFORMATION
  Report Type: Spontaneous
  Country: DK (occurrence: DK)
  Receive Date: 20201019
  Receipt Date: 20201019
  Transmission Date: 20210114
  Serious: Yes (Other)
  Sender: FDA-Public Use
  Company Number: DK-SHIRE-DK202033449

PATIENT

DRUGS (3)
  1. ELVANSE [Suspect]
     Active Substance: LISDEXAMFETAMINE DIMESYLATE
     Dosage: 50 MILLIGRAM, 1X/DAY:QD
     Route: 048
     Dates: start: 202009
  2. METHYLPHENIDAT ^2CARE4^ [Suspect]
     Active Substance: METHYLPHENIDATE HYDROCHLORIDE
     Indication: ATTENTION DEFICIT HYPERACTIVITY DISORDER
     Dosage: 10 MILLIGRAM (1-2 TABLETS), 1X/DAY:QD
     Route: 048
     Dates: start: 20200825, end: 20200831
  3. ELVANSE [Suspect]
     Active Substance: LISDEXAMFETAMINE DIMESYLATE
     Indication: ATTENTION DEFICIT HYPERACTIVITY DISORDER
     Dosage: 30 MILLIGRAM, 1X/DAY:QD
     Route: 048
     Dates: start: 20200831, end: 20200909

REACTIONS (5)
  - Stevens-Johnson syndrome [Not Recovered/Not Resolved]
  - Skin exfoliation [Recovering/Resolving]
  - Sleep disorder [Recovering/Resolving]
  - Decreased appetite [Not Recovered/Not Resolved]
  - Social avoidant behaviour [Not Recovered/Not Resolved]

NARRATIVE: CASE EVENT DATE: 20200826
